FAERS Safety Report 7867254-0 (Version None)
Quarter: 2011Q4

REPORT INFORMATION
  Report Type: 
  Country: None (occurrence: None)
  Receive Date: 20111028
  Receipt Date: 20111021
  Transmission Date: 20120403
  Serious: Yes (Hospitalization)
  Sender: FDA-Public Use
  Company Number: JP-JNJFOC-20111006873

PATIENT
  Sex: Female
  Weight: 69 kg

DRUGS (13)
  1. PALIPERIDONE [Suspect]
     Route: 030
     Dates: start: 20110425, end: 20110425
  2. PALIPERIDONE [Suspect]
     Indication: SCHIZOPHRENIA
     Route: 030
     Dates: start: 20110301, end: 20110301
  3. PALIPERIDONE [Suspect]
     Route: 030
     Dates: start: 20110914, end: 20110914
  4. PURSENNID [Concomitant]
     Indication: CONSTIPATION
     Route: 048
  5. PALIPERIDONE [Suspect]
     Route: 030
     Dates: start: 20110329, end: 20110329
  6. PALIPERIDONE [Suspect]
     Route: 030
     Dates: start: 20110525, end: 20110525
  7. PALIPERIDONE [Suspect]
     Route: 030
     Dates: start: 20110622, end: 20110622
  8. PALIPERIDONE [Suspect]
     Route: 030
     Dates: start: 20111013
  9. NORVASC [Concomitant]
     Route: 048
     Dates: end: 20110622
  10. PALIPERIDONE [Suspect]
     Route: 030
     Dates: start: 20110222, end: 20110222
  11. PALIPERIDONE [Suspect]
     Route: 030
     Dates: start: 20110720, end: 20110720
  12. NORVASC [Concomitant]
     Indication: HYPERTENSION
     Route: 048
     Dates: start: 20110623
  13. PALIPERIDONE [Suspect]
     Route: 030
     Dates: start: 20110816, end: 20110816

REACTIONS (1)
  - SCHIZOPHRENIA [None]
